FAERS Safety Report 7775580-9 (Version None)
Quarter: 2011Q3

REPORT INFORMATION
  Report Type: 
  Country: None (occurrence: None)
  Receive Date: 20110921
  Receipt Date: 20110912
  Transmission Date: 20111222
  Serious: Yes (Other)
  Sender: FDA-Public Use
  Company Number: 2011SP042963

PATIENT
  Age: 36 Year
  Sex: Female

DRUGS (1)
  1. NUVARING [Suspect]
     Indication: CONTRACEPTION
     Dosage: 1 DF; QM; VAG
     Route: 067
     Dates: start: 20100101

REACTIONS (7)
  - NAUSEA [None]
  - VOMITING [None]
  - BODY TEMPERATURE INCREASED [None]
  - DEHYDRATION [None]
  - RED BLOOD CELL COUNT INCREASED [None]
  - DIARRHOEA [None]
  - VIRAL INFECTION [None]
